FAERS Safety Report 6128554-8 (Version None)
Quarter: 2009Q1

REPORT INFORMATION
  Report Type: 
  Country: None (occurrence: None)
  Receive Date: 20090323
  Receipt Date: 20090311
  Transmission Date: 20090719
  Serious: Yes (Death)
  Sender: FDA-Public Use
  Company Number: SE-ELI_LILLY_AND_COMPANY-SE200903002621

PATIENT
  Age: 54 Year
  Sex: Male

DRUGS (3)
  1. ZYPREXA [Suspect]
     Indication: SCHIZOPHRENIA
     Dosage: 15 MG, UNK
  2. SERTRALINE [Concomitant]
     Dosage: 100 MG, UNK
  3. MIRTAZAPINE [Concomitant]
     Dosage: 45 MG, UNK

REACTIONS (1)
  - COMPLETED SUICIDE [None]
